FAERS Safety Report 4803847-2 (Version None)
Quarter: 2005Q3

REPORT INFORMATION
  Report Type: 
  Country: None (occurrence: None)
  Receive Date: 20050920
  Receipt Date: 20050706
  Transmission Date: 20060218
  Serious: No
  Sender: FDA-Public Use
  Company Number: US-YAMANOUCHI-YPA20050270

PATIENT
  Age: 85 Year
  Sex: Male
  Weight: 83.9154 kg

DRUGS (9)
  1. VESICARE [Suspect]
     Indication: URGE INCONTINENCE
     Dosage: 5 MG QD PO
     Route: 048
     Dates: start: 20050509
  2. TERRAZOSIN [Concomitant]
  3. COUMADIN [Concomitant]
  4. TOPROL-XL [Concomitant]
  5. LANOXIN [Concomitant]
  6. ZOCOR [Concomitant]
  7. ACIPHEX [Concomitant]
  8. PLAVIX [Concomitant]
  9. CENTRUM [Concomitant]

REACTIONS (1)
  - URINARY TRACT INFECTION [None]
